FAERS Safety Report 24981593 (Version 1)
Quarter: 2025Q1

REPORT INFORMATION
  Report Type: Spontaneous
  Country: US (occurrence: None)
  Receive Date: 20250217
  Receipt Date: 20250217
  Transmission Date: 20250408
  Serious: Yes (Disabling, Other)
  Sender: FDA-CTU
  Company Number: None

PATIENT
  Age: 60 Year
  Sex: Male
  Weight: 89.1 kg

DRUGS (5)
  1. PRIVIGEN [Suspect]
     Active Substance: HUMAN IMMUNOGLOBULIN G
     Indication: Chronic lymphocytic leukaemia
     Route: 050
     Dates: start: 20241024, end: 20241121
  2. PRIVIGEN [Suspect]
     Active Substance: HUMAN IMMUNOGLOBULIN G
     Indication: Chronic lymphocytic leukaemia
     Route: 050
     Dates: start: 20241024, end: 20241121
  3. DEVICE [Concomitant]
     Active Substance: DEVICE
  4. TESTOSTERONE [Concomitant]
     Active Substance: TESTOSTERONE
  5. Kirkland Mature Adult Daily Vitamin [Concomitant]

REACTIONS (16)
  - Headache [None]
  - Pain [None]
  - Rash [None]
  - Urticaria [None]
  - Pruritus [None]
  - Eye swelling [None]
  - Periorbital swelling [None]
  - Flushing [None]
  - Feeling abnormal [None]
  - Skin exfoliation [None]
  - Lymphadenopathy [None]
  - Skin exfoliation [None]
  - Drug ineffective [None]
  - Skin fissures [None]
  - Loss of personal independence in daily activities [None]
  - Paraesthesia [None]

NARRATIVE: CASE EVENT DATE: 20241122
